FAERS Safety Report 8995733 (Version 1)
Quarter: 2013Q1

REPORT INFORMATION
  Report Type: Spontaneous
  Country: US (occurrence: US)
  Receive Date: 20130103
  Receipt Date: 20130103
  Transmission Date: 20140127
  Serious: No
  Sender: FDA-Public Use
  Company Number: US-ABBOTT-12P-163-0969491-00

PATIENT
  Sex: Female
  Weight: 68.1 kg

DRUGS (4)
  1. SYNTHROID 88 MCG [Suspect]
     Indication: HYPOTHYROIDISM
  2. FISH OIL [Suspect]
     Indication: PRODUCT USED FOR UNKNOWN INDICATION
  3. VITAMIN B-COMPLEX [Concomitant]
     Indication: PRODUCT USED FOR UNKNOWN INDICATION
  4. MULTIPLE VITAMINS [Concomitant]
     Indication: PRODUCT USED FOR UNKNOWN INDICATION

REACTIONS (2)
  - Blood cholesterol increased [Not Recovered/Not Resolved]
  - Fatigue [Not Recovered/Not Resolved]
